FAERS Safety Report 20436089 (Version 2)
Quarter: 2022Q1

REPORT INFORMATION
  Report Type: Report from Study
  Country: CA (occurrence: CA)
  Receive Date: 20220207
  Receipt Date: 20220330
  Transmission Date: 20220423
  Serious: Yes (Other)
  Sender: FDA-Public Use
  Company Number: CA-SAMSUNG BIOEPIS-SB-2022-02482

PATIENT
  Sex: Female

DRUGS (1)
  1. RENFLEXIS [Suspect]
     Active Substance: INFLIXIMAB-ABDA
     Indication: Psoriasis
     Route: 042
     Dates: start: 20191129

REACTIONS (2)
  - Thrombosis [Recovered/Resolved]
  - Infusion site reaction [Unknown]
